FAERS Safety Report 9338888 (Version 3)
Quarter: 2015Q4

REPORT INFORMATION
  Report Type: Spontaneous
  Country: JP (occurrence: JP)
  Receive Date: 20130610
  Receipt Date: 20151007
  Transmission Date: 20160305
  Serious: Yes (Other)
  Sender: FDA-Public Use
  Company Number: PHHY2013JP057837

PATIENT
  Age: 73 Year
  Sex: Male
  Weight: 53 kg

DRUGS (10)
  1. TASIGNA [Suspect]
     Active Substance: NILOTINIB
     Dosage: 300 MG, QD
     Route: 048
     Dates: start: 20130116, end: 20130123
  2. TASIGNA [Suspect]
     Active Substance: NILOTINIB
     Dosage: 800 MG, QD
     Route: 048
     Dates: start: 20120407, end: 20120417
  3. TASIGNA [Suspect]
     Active Substance: NILOTINIB
     Dosage: 200 MG, DAILY
     Route: 048
     Dates: start: 20120628, end: 20120701
  4. TASIGNA [Suspect]
     Active Substance: NILOTINIB
     Dosage: 150 MG, QD
     Route: 048
     Dates: start: 20130110
  5. TASIGNA [Suspect]
     Active Substance: NILOTINIB
     Dosage: 200 MG, QD
     Route: 048
     Dates: start: 20120628, end: 20120701
  6. WARFARIN POTASSIUM [Suspect]
     Active Substance: WARFARIN POTASSIUM
     Indication: PRODUCT USED FOR UNKNOWN INDICATION
     Route: 065
  7. TASIGNA [Suspect]
     Active Substance: NILOTINIB
     Dosage: 450 MG, QD
     Route: 048
     Dates: start: 20120418, end: 20120606
  8. TASIGNA [Suspect]
     Active Substance: NILOTINIB
     Indication: CHRONIC MYELOID LEUKAEMIA
     Dosage: 300 MG, DAILY
     Route: 048
     Dates: start: 20120407
  9. TASIGNA [Suspect]
     Active Substance: NILOTINIB
     Dosage: 450 MG, DAILY
     Route: 048
     Dates: start: 20120418, end: 20120606
  10. TASIGNA [Suspect]
     Active Substance: NILOTINIB
     Dosage: 150 MG, DAILY
     Route: 048
     Dates: start: 20130110, end: 20130123

REACTIONS (6)
  - Haemorrhage subcutaneous [Unknown]
  - Alanine aminotransferase increased [Recovered/Resolved]
  - Liver disorder [Recovered/Resolved]
  - Liver disorder [Recovered/Resolved]
  - Aspartate aminotransferase increased [Recovered/Resolved]
  - Pruritus [Unknown]

NARRATIVE: CASE EVENT DATE: 20120606
